FAERS Safety Report 8903214 (Version 5)
Quarter: 2015Q1

REPORT INFORMATION
  Report Type: Report from Study
  Country: US (occurrence: US)
  Receive Date: 20121112
  Receipt Date: 20150331
  Transmission Date: 20150721
  Serious: Yes (Hospitalization, Other)
  Sender: FDA-Public Use
  Company Number: US-BIOGENIDEC-2012BI050879

PATIENT
  Age: 40 Year
  Sex: Female

DRUGS (2)
  1. TYSABRI [Suspect]
     Active Substance: NATALIZUMAB
     Indication: MULTIPLE SCLEROSIS
     Route: 042
     Dates: start: 20071017, end: 20120829
  2. TYSABRI [Suspect]
     Active Substance: NATALIZUMAB
     Indication: MULTIPLE SCLEROSIS
     Dates: start: 20130514, end: 20131224

REACTIONS (19)
  - Cardiac failure chronic [Not Recovered/Not Resolved]
  - Hypotension [Recovered/Resolved]
  - Pulmonary oedema [Recovered/Resolved]
  - Motor dysfunction [Unknown]
  - Eye movement disorder [Unknown]
  - Hypertension [Recovered/Resolved]
  - Gait disturbance [Unknown]
  - Cough [Recovered/Resolved]
  - Orthopnoea [Recovered/Resolved]
  - Vision blurred [Unknown]
  - Cardiomegaly [Unknown]
  - Cardiac failure congestive [Recovered/Resolved]
  - Heart rate increased [Recovered/Resolved]
  - Mobility decreased [Unknown]
  - General physical health deterioration [Not Recovered/Not Resolved]
  - Cardiac disorder [Unknown]
  - Drug specific antibody present [Unknown]
  - Breath sounds abnormal [Recovered/Resolved]
  - Wheezing [Recovered/Resolved]

NARRATIVE: CASE EVENT DATE: 2012
